FAERS Safety Report 7635214-0 (Version None)
Quarter: 2011Q3

REPORT INFORMATION
  Report Type: 
  Country: None (occurrence: None)
  Receive Date: 20110726
  Receipt Date: 20110722
  Transmission Date: 20111222
  Serious: Yes (Other)
  Sender: FDA-Public Use
  Company Number: US-AMGEN-USASP2011037390

PATIENT
  Age: 49 Year
  Sex: Female

DRUGS (3)
  1. ANTINEOPLASTIC AGENTS [Suspect]
  2. NEULASTA [Suspect]
     Indication: CHEMOTHERAPY
     Dates: start: 20110607
  3. VALTREX [Concomitant]

REACTIONS (2)
  - WHITE BLOOD CELL COUNT DECREASED [None]
  - HERPES VIRUS INFECTION [None]
